FAERS Safety Report 7691243 (Version 2)
Quarter: 2014Q3

REPORT INFORMATION
  Report Type: Spontaneous
  Country: US (occurrence: US)
  Receive Date: 20101203
  Receipt Date: 20140815
  Transmission Date: 20150326
  Serious: Yes (Hospitalization, Other)
  Sender: FDA-Public Use
  Company Number: US-ROCHE-722751

PATIENT
  Age: 16 Year
  Sex: Male
  Weight: 73 kg

DRUGS (1)
  1. ACCUTANE [Suspect]
     Active Substance: ISOTRETINOIN
     Indication: ACNE
     Route: 065
     Dates: start: 199812, end: 199909

REACTIONS (10)
  - Gastrointestinal injury [Unknown]
  - Depression [Unknown]
  - Lip dry [Unknown]
  - Inflammatory bowel disease [Unknown]
  - Polyarthritis [Unknown]
  - Arthralgia [Unknown]
  - Crohn^s disease [Unknown]
  - Proctitis ulcerative [Recovering/Resolving]
  - Aspartate aminotransferase increased [Unknown]
  - Blood cholesterol increased [Unknown]

NARRATIVE: CASE EVENT DATE: 19990217
